FAERS Safety Report 10548654 (Version 1)
Quarter: 2014Q4

REPORT INFORMATION
  Report Type: Spontaneous
  Country: CO (occurrence: CO)
  Receive Date: 20141028
  Receipt Date: 20141028
  Transmission Date: 20150529
  Serious: Yes (Hospitalization, Other)
  Sender: FDA-Public Use
  Company Number: CO-JNJFOC-20141014864

PATIENT
  Age: 43 Year
  Sex: Male
  Weight: 92 kg

DRUGS (1)
  1. REMICADE [Suspect]
     Active Substance: INFLIXIMAB
     Indication: RHEUMATOID ARTHRITIS
     Route: 042
     Dates: start: 20130712, end: 20140912

REACTIONS (4)
  - Lip oedema [Recovered/Resolved]
  - Infusion related reaction [Recovered/Resolved]
  - Face oedema [Recovered/Resolved]
  - Speech disorder [Recovered/Resolved]
